FAERS Safety Report 7676629-4 (Version None)
Quarter: 2011Q3

REPORT INFORMATION
  Report Type: 
  Country: None (occurrence: None)
  Receive Date: 20110811
  Receipt Date: 20110801
  Transmission Date: 20111222
  Serious: Yes (Other)
  Sender: FDA-Public Use
  Company Number: US-AMGEN-USASP2011039051

PATIENT
  Age: 35 Year
  Sex: Female

DRUGS (4)
  1. ENBREL [Suspect]
     Indication: RAYNAUD'S PHENOMENON
  2. HUMIRA [Concomitant]
     Dosage: UNK
     Dates: start: 20110201, end: 20110305
  3. ENBREL [Suspect]
     Indication: SYSTEMIC LUPUS ERYTHEMATOSUS
  4. ENBREL [Suspect]
     Indication: ANKYLOSING SPONDYLITIS
     Dosage: 25 MG, 2 TIMES/WK
     Dates: start: 20050101

REACTIONS (23)
  - ASTHMA [None]
  - SYSTEMIC LUPUS ERYTHEMATOSUS [None]
  - ASTHENIA [None]
  - MUSCULOSKELETAL STIFFNESS [None]
  - RASH PRURITIC [None]
  - INJECTION SITE ERYTHEMA [None]
  - PLEURISY [None]
  - PNEUMONIA [None]
  - INJECTION SITE WARMTH [None]
  - INJECTION SITE SWELLING [None]
  - RADICULOPATHY [None]
  - URTICARIA [None]
  - THERAPEUTIC RESPONSE DECREASED [None]
  - CHEST EXPANSION DECREASED [None]
  - FLUSHING [None]
  - LORDOSIS [None]
  - URINARY TRACT INFLAMMATION [None]
  - INJECTION SITE DISCOLOURATION [None]
  - COELIAC DISEASE [None]
  - SPINAL FUSION ACQUIRED [None]
  - RAYNAUD'S PHENOMENON [None]
  - JOINT SWELLING [None]
  - BACK PAIN [None]
